FAERS Safety Report 13831951 (Version 1)
Quarter: 2017Q3

REPORT INFORMATION
  Report Type: Spontaneous
  Country: US (occurrence: US)
  Receive Date: 20170803
  Receipt Date: 20170803
  Transmission Date: 20171127
  Serious: No
  Sender: FDA-Public Use
  Company Number: US-ROCHE-683916

PATIENT
  Sex: Female
  Weight: 88.5 kg

DRUGS (3)
  1. VITAMIN D [Concomitant]
     Active Substance: CHOLECALCIFEROL
     Route: 065
  2. BONIVA [Suspect]
     Active Substance: IBANDRONATE SODIUM
     Indication: OSTEOPENIA
     Route: 048
  3. CITRACAL [Concomitant]
     Active Substance: CALCIUM CITRATE
     Route: 065

REACTIONS (4)
  - Insomnia [Not Recovered/Not Resolved]
  - Dizziness [Unknown]
  - Anxiety [Not Recovered/Not Resolved]
  - Bone pain [Unknown]
